FAERS Safety Report 18381782 (Version 1)
Quarter: 2020Q4

REPORT INFORMATION
  Report Type: Spontaneous
  Country: CN (occurrence: CN)
  Receive Date: 20201014
  Receipt Date: 20201014
  Transmission Date: 20210114
  Serious: Yes (Other)
  Sender: FDA-Public Use
  Company Number: CN-ROCHE-2694394

PATIENT
  Age: 72 Year
  Sex: Female
  Weight: 60 kg

DRUGS (2)
  1. ACTILYSE [Suspect]
     Active Substance: ALTEPLASE
     Indication: DISEASE PROGRESSION
     Route: 048
     Dates: start: 20200831, end: 20200907
  2. MOBIC [Suspect]
     Active Substance: MELOXICAM
     Indication: DISEASE PROGRESSION
     Route: 048
     Dates: start: 20200831, end: 20200907

REACTIONS (1)
  - Duodenal ulcer [Recovering/Resolving]

NARRATIVE: CASE EVENT DATE: 20200903
